FAERS Safety Report 24843995 (Version 1)
Quarter: 2025Q1

REPORT INFORMATION
  Report Type: Spontaneous
  Country: US (occurrence: US)
  Receive Date: 20250115
  Receipt Date: 20250115
  Transmission Date: 20250409
  Serious: No
  Sender: TRAVERE THERAPEUTICS
  Company Number: US-TRAVERE-2024TVT01273

PATIENT
  Age: 43 Year
  Sex: Male

DRUGS (1)
  1. FILSPARI [Suspect]
     Active Substance: SPARSENTAN
     Indication: IgA nephropathy
     Route: 048
     Dates: start: 20241112, end: 20241205

REACTIONS (4)
  - Dizziness [Unknown]
  - Hypotension [Unknown]
  - Peripheral swelling [None]
  - Oedema peripheral [Unknown]

NARRATIVE: CASE EVENT DATE: 20241205
